APPROVED DRUG PRODUCT: HYDROXYZINE HYDROCHLORIDE
Active Ingredient: HYDROXYZINE HYDROCHLORIDE
Strength: 100MG
Dosage Form/Route: TABLET;ORAL
Application: A081054 | Product #001
Applicant: PLIVA INC
Approved: Sep 25, 1995 | RLD: No | RS: No | Type: DISCN